FAERS Safety Report 15465601 (Version 3)
Quarter: 2022Q1

REPORT INFORMATION
  Report Type: Report from Study
  Country: FR (occurrence: FR)
  Receive Date: 20181004
  Receipt Date: 20220204
  Transmission Date: 20220423
  Serious: Yes (Hospitalization, Other)
  Sender: FDA-Public Use
  Company Number: FR-SHIRE-FR201837729

PATIENT

DRUGS (10)
  1. ONCASPAR [Suspect]
     Active Substance: PEGASPARGASE
     Indication: Acute lymphocytic leukaemia
     Dosage: 2100 IU, QD
     Route: 042
     Dates: start: 20180903
  2. VINCRISTINE [Suspect]
     Active Substance: VINCRISTINE
     Indication: Acute lymphocytic leukaemia
     Dosage: UNK UNK, 1X/DAY:QD
     Route: 042
     Dates: start: 20180829
  3. ADRIAMYCIN [Suspect]
     Active Substance: DOXORUBICIN HYDROCHLORIDE
     Indication: Acute lymphocytic leukaemia
     Dosage: UNK UNK, 1X/DAY:QD
     Route: 042
     Dates: start: 20180829, end: 20180912
  4. DEXAMETHASONE [Suspect]
     Active Substance: DEXAMETHASONE
     Indication: Acute lymphocytic leukaemia
     Dosage: UNK UNK, 1X/DAY:QD
     Route: 048
     Dates: start: 20180829
  5. CYTARABINE [Suspect]
     Active Substance: CYTARABINE
     Indication: Acute lymphocytic leukaemia
     Dosage: UNK UNK, 1X/DAY:QD
     Route: 037
     Dates: start: 20180901
  6. CYTARABINE [Suspect]
     Active Substance: CYTARABINE
     Dosage: 62.5 MG, UNK
     Route: 042
     Dates: start: 20181003, end: 20181013
  7. HYDROCORTISONE [Suspect]
     Active Substance: HYDROCORTISONE
     Indication: Acute lymphocytic leukaemia
     Dosage: UNK UNK, 1X/DAY:QD
     Route: 037
     Dates: start: 20180901
  8. METHOTREXATE [Suspect]
     Active Substance: METHOTREXATE
     Indication: Acute lymphocytic leukaemia
     Dosage: UNK UNK, 1X/DAY:QD
     Route: 037
     Dates: start: 20180901
  9. THIOGUANINE ANHYDROUS [Suspect]
     Active Substance: THIOGUANINE ANHYDROUS
     Indication: Acute lymphocytic leukaemia
     Dosage: 48.6 MG, UNK
     Route: 048
     Dates: start: 20181001, end: 20181014
  10. CYCLOPHOSPHAMIDE [Suspect]
     Active Substance: CYCLOPHOSPHAMIDE
     Indication: Acute lymphocytic leukaemia
     Dosage: 830 MG, UNK
     Route: 042
     Dates: start: 20181001, end: 20181001

REACTIONS (2)
  - Hepatic cytolysis [Recovered/Resolved]
  - Ecthyma [Unknown]

NARRATIVE: CASE EVENT DATE: 20180101
